FAERS Safety Report 4944035-9 (Version None)
Quarter: 2006Q1

REPORT INFORMATION
  Report Type: 
  Country: None (occurrence: None)
  Receive Date: 20060315
  Receipt Date: 20060302
  Transmission Date: 20060701
  Serious: Yes (Other)
  Sender: FDA-Public Use
  Company Number: PHBS2006IE03321

PATIENT
  Age: 55 Year
  Sex: Female

DRUGS (2)
  1. PAMIDRONATE DISODIUM [Suspect]
     Dosage: 30 MG, UNK
     Route: 042
     Dates: start: 19981106
  2. ZOMETA [Suspect]
     Route: 065

REACTIONS (2)
  - DENTAL TREATMENT [None]
  - OSTEONECROSIS [None]
